FAERS Safety Report 21360778 (Version 1)
Quarter: 2022Q3

REPORT INFORMATION
  Report Type: Spontaneous
  Country: CN (occurrence: None)
  Receive Date: 20220921
  Receipt Date: 20220921
  Transmission Date: 20221026
  Serious: Yes (Other)
  Sender: FDA-Public Use
  Company Number: 2022A317738

PATIENT
  Age: 64 Year
  Sex: Female

DRUGS (1)
  1. OSIMERTINIB [Suspect]
     Active Substance: OSIMERTINIB
     Indication: Lung adenocarcinoma
     Route: 048
     Dates: start: 20190614, end: 20200914

REACTIONS (3)
  - Malignant neoplasm progression [Recovering/Resolving]
  - Acquired gene mutation [Unknown]
  - Drug resistance [Unknown]

NARRATIVE: CASE EVENT DATE: 20200914
